FAERS Safety Report 4684667-9 (Version None)
Quarter: 2005Q2

REPORT INFORMATION
  Report Type: 
  Country: None (occurrence: None)
  Receive Date: 20050603
  Receipt Date: 20050530
  Transmission Date: 20051028
  Serious: Yes (Death)
  Sender: FDA-Public Use
  Company Number: 200511750GDS

PATIENT
  Age: 77 Year
  Sex: Male
  Weight: 55 kg

DRUGS (2)
  1. ACTIMAX (MOXIFLOXACIN) [Suspect]
     Indication: PNEUMONIA
     Dosage: SEE IMAGE
     Dates: start: 20050224, end: 20050228
  2. ANALGETIC DRUGS [Concomitant]

REACTIONS (3)
  - CONFUSIONAL STATE [None]
  - DIZZINESS [None]
  - RENAL CELL CARCINOMA STAGE UNSPECIFIED [None]
